FAERS Safety Report 17016595 (Version 6)
Quarter: 2020Q4

REPORT INFORMATION
  Report Type: Spontaneous
  Country: US (occurrence: US)
  Receive Date: 20191111
  Receipt Date: 20201130
  Transmission Date: 20210113
  Serious: No
  Sender: FDA-Public Use
  Company Number: US-PFIZER INC-2019486913

PATIENT
  Age: 90 Year
  Sex: Male
  Weight: 73.47 kg

DRUGS (10)
  1. POTASSIUM [Concomitant]
     Active Substance: POTASSIUM
     Dosage: UNK (DATE STARTED (OR BEST ESTIMATED PERIOD): 3 YEARS)
  2. VYNDAQEL [Suspect]
     Active Substance: TAFAMIDIS MEGLUMINE
     Indication: AMYLOIDOSIS
     Dosage: 80 MG, DAILY
     Route: 048
     Dates: start: 20191014
  3. VYNDAQEL [Suspect]
     Active Substance: TAFAMIDIS MEGLUMINE
     Indication: CARDIAC AMYLOIDOSIS
  4. WARFARIN [Concomitant]
     Active Substance: WARFARIN
     Dosage: UNK (DATE STARTED (OR BEST ESTIMATED PERIOD): 3 YEARS)
  5. CARVEDILOL. [Suspect]
     Active Substance: CARVEDILOL
     Indication: CARDIAC FAILURE CONGESTIVE
     Dosage: 3.125 MG, 2X/DAY (DATE STARTED: 2 YEARS)
     Dates: start: 2018
  6. FAMOTIDINE. [Concomitant]
     Active Substance: FAMOTIDINE
     Dosage: UNK (DATE STARTED (OR BEST ESTIMATED PERIOD): 5 MONTHS)
  7. CARVEDILOL. [Suspect]
     Active Substance: CARVEDILOL
     Indication: ATRIAL FIBRILLATION
  8. TORSEMIDE. [Concomitant]
     Active Substance: TORSEMIDE
     Dosage: UNK (DATE STARTED: 3 YEARS)
     Dates: end: 20200105
  9. PRAVASTATIN. [Concomitant]
     Active Substance: PRAVASTATIN
     Dosage: UNK (MANY YEARS)
  10. FINASTERIDE. [Concomitant]
     Active Substance: FINASTERIDE
     Dosage: UNK (DATE STARTED (OR BEST ESTIMATED PERIOD): 10 YEARS)

REACTIONS (3)
  - Somnolence [Recovered/Resolved]
  - Hypersomnia [Recovered/Resolved]
  - Fatigue [Recovering/Resolving]

NARRATIVE: CASE EVENT DATE: 201911
